FAERS Safety Report 8045379-7 (Version None)
Quarter: 2012Q1

REPORT INFORMATION
  Report Type: 
  Country: None (occurrence: None)
  Receive Date: 20120111
  Receipt Date: 20120111
  Transmission Date: 20120608
  Serious: Yes (Death)
  Sender: FDA-Public Use
  Company Number: None

PATIENT
  Age: 84 Year
  Sex: Male
  Weight: 78.4723 kg

DRUGS (11)
  1. TARCEVA [Suspect]
     Indication: NON-SMALL CELL LUNG CANCER
     Dosage: 150MG, DAILY,ORAL
     Route: 048
     Dates: start: 20110406
  2. PERCOCET [Concomitant]
  3. MAGIC MOUTHWASH [Concomitant]
  4. MS CONTIN [Concomitant]
  5. AVODART [Concomitant]
  6. COLACE [Concomitant]
  7. FLOMAX [Concomitant]
  8. SINEMET [Concomitant]
  9. SENOKOT [Concomitant]
  10. RADIATION TREATMENT [Concomitant]
  11. PEPCID [Concomitant]

REACTIONS (2)
  - PNEUMONIA [None]
  - BACK PAIN [None]
